FAERS Safety Report 4878382-6 (Version None)
Quarter: 2005Q4

REPORT INFORMATION
  Report Type: 
  Country: None (occurrence: None)
  Receive Date: 20051209
  Receipt Date: 20050817
  Transmission Date: 20060501
  Serious: No
  Sender: FDA-Public Use
  Company Number: SUS1-2005-00629

PATIENT
  Age: 37 Year
  Sex: Male
  Weight: 56.7 kg

DRUGS (23)
  1. FOSRENOL [Suspect]
     Indication: HYPOPHOSPHATAEMIA
     Dosage: 500 MG, 3X/DAY:TID, ORAL
     Route: 048
     Dates: start: 20050701
  2. ACETAMINOPHEN W/HYDROCODONE (HYDROCODONE) [Concomitant]
  3. ALPRAZOLAM [Concomitant]
  4. ZOLPIDEM TARTRATE [Concomitant]
  5. CALCITRIOL [Concomitant]
  6. PHOSLO [Concomitant]
  7. CELEBREX [Concomitant]
  8. DOSTINEX [Concomitant]
  9. ESTRADIOL INJ [Concomitant]
  10. FERROUS SULFATE TAB [Concomitant]
  11. FLAXSEED OIL (LINUM USITATISSIMUM SEED OIL) [Concomitant]
  12. FOLIC ACID [Concomitant]
  13. LEVOTHYROXINE SODIUM [Concomitant]
  14. LIDOCAINE [Concomitant]
  15. MULTIVITAMINS, PLAIN [Concomitant]
  16. PROMETHAZINE [Concomitant]
  17. SELENIUM SULFIDE [Concomitant]
  18. VALIUM [Concomitant]
  19. VITAMIN B COMPLEX CAP [Concomitant]
  20. VITAMIN B12 [Concomitant]
  21. VITAMIN E [Concomitant]
  22. ZINC [Concomitant]
  23. COQ10 (UBIDECARENONE) [Concomitant]

REACTIONS (1)
  - BLOOD CREATINE PHOSPHOKINASE INCREASED [None]
